FAERS Safety Report 10697654 (Version 1)
Quarter: 2015Q1

REPORT INFORMATION
  Report Type: Spontaneous
  Country: US (occurrence: None)
  Receive Date: 20150107
  Receipt Date: 20150107
  Transmission Date: 20150721
  Serious: Yes (Other)
  Sender: FDA-Public Use
  Company Number: None

PATIENT
  Age: 61 Year
  Sex: Male
  Weight: 92.53 kg

DRUGS (1)
  1. ZYTIGA [Suspect]
     Active Substance: ABIRATERONE ACETATE
     Indication: PROSTATE CANCER
     Dosage: STRENGTH: 250, FREQUENCY: QD, DOSE FORM: ORAL, ROUTE: ORAL 047
     Route: 048
     Dates: start: 20141220

REACTIONS (2)
  - Heart rate increased [None]
  - Oedema peripheral [None]

NARRATIVE: CASE EVENT DATE: 20150105
